FAERS Safety Report 10257786 (Version 1)
Quarter: 2014Q2

REPORT INFORMATION
  Report Type: Report from Study
  Country: US (occurrence: US)
  Receive Date: 20140625
  Receipt Date: 20140625
  Transmission Date: 20141212
  Serious: Yes (Other)
  Sender: FDA-Public Use
  Company Number: US-BAYER-2014-095117

PATIENT
  Sex: Female

DRUGS (1)
  1. MIRENA [Suspect]
     Indication: CONTRACEPTION
     Dosage: 20 MCG/24HR, CONT
     Route: 015
     Dates: start: 2006

REACTIONS (10)
  - Bacterial infection [None]
  - Weight increased [None]
  - Acne [Not Recovered/Not Resolved]
  - Scar [Not Recovered/Not Resolved]
  - Abdominal pain [None]
  - Mood altered [None]
  - Headache [None]
  - Alopecia [Not Recovered/Not Resolved]
  - Depression [None]
  - Adverse drug reaction [None]
